FAERS Safety Report 9403505 (Version 2)
Quarter: 2013Q3

REPORT INFORMATION
  Report Type: Report from Study
  Country: PL (occurrence: PL)
  Receive Date: 20130716
  Receipt Date: 20130918
  Transmission Date: 20140515
  Serious: Yes (Death, Hospitalization)
  Sender: FDA-Public Use
  Company Number: PL-MERCK-1307POL006341

PATIENT
  Age: 78 Year
  Sex: Female
  Weight: 39 kg

DRUGS (8)
  1. DEXAMETHASONE [Suspect]
     Indication: PLASMA CELL MYELOMA
     Dosage: 20 MG, ON DAYS 1, 2, 4, 5, 8, 9, 11, 12, EVERY 21 DAYS
     Route: 048
     Dates: start: 20130222, end: 20130618
  2. DEXAMETHASONE [Suspect]
     Dosage: 20 MG, ON DAYS 1, 2, 4, 5, 8, 9, 11, 12, EVERY 21 DAYS
     Route: 048
     Dates: end: 20130628
  3. BORTEZOMIB [Suspect]
     Indication: PLASMA CELL MYELOMA
     Dosage: 1.3 MG/M2, ON DAYS 1, 4, 8, 11, EVERY 21 DAYS
     Route: 058
     Dates: start: 20130222, end: 20130617
  4. BORTEZOMIB [Suspect]
     Dosage: 1.3 MG/M2, ON DAYS 1, 4, 8, 11, EVERY 21 DAYS
     Route: 058
     Dates: end: 20130628
  5. STUDY DRUG (UNSPECIFIED) [Suspect]
     Indication: PLASMA CELL MYELOMA
     Dosage: UNK
     Dates: start: 20130222, end: 20130607
  6. STUDY DRUG (UNSPECIFIED) [Suspect]
     Dosage: UNK
     Dates: end: 20130628
  7. METOPROLOL [Concomitant]
     Indication: CARDIAC FAILURE
     Dosage: UNK
     Dates: start: 2005
  8. TRIMETAZIDINE HYDROCHLORIDE [Concomitant]
     Indication: CARDIAC FAILURE
     Dosage: UNK

REACTIONS (1)
  - General physical health deterioration [Fatal]
